FAERS Safety Report 22075484 (Version 1)
Quarter: 2023Q1

REPORT INFORMATION
  Report Type: Spontaneous
  Country: US (occurrence: None)
  Receive Date: 20230307
  Receipt Date: 20230307
  Transmission Date: 20230418
  Serious: Yes (Hospitalization)
  Sender: FDA-Public Use
  Company Number: None

PATIENT
  Sex: Female

DRUGS (4)
  1. XOLAIR [Suspect]
     Active Substance: OMALIZUMAB
     Indication: Asthma
     Dosage: 150 MG/ML SUBCUTANEOUS??INJECT 300 MG SUBCUTANEOUSLY EVERY 4 WEEKS
     Route: 058
     Dates: start: 20230124
  2. DOCUSATE SOD CAP [Concomitant]
  3. LASIX [Concomitant]
     Active Substance: FUROSEMIDE
  4. POTASSIUM POW CHLORIDE [Concomitant]

REACTIONS (1)
  - Heart valve operation [None]

NARRATIVE: CASE EVENT DATE: 20230201
